FAERS Safety Report 13006717 (Version 1)
Quarter: 2016Q4

REPORT INFORMATION
  Report Type: Spontaneous
  Country: JP (occurrence: JP)
  Receive Date: 20161207
  Receipt Date: 20161207
  Transmission Date: 20170207
  Serious: Yes (Other)
  Sender: FDA-Public Use
  Company Number: JP-GILEAD-2016-0245731AA

PATIENT
  Age: 74 Year
  Sex: Female

DRUGS (9)
  1. HARVONI [Suspect]
     Active Substance: LEDIPASVIR\SOFOSBUVIR
     Indication: CHRONIC HEPATITIS C
     Dosage: 1 DF, UNK
     Route: 048
  2. TEPRENONE [Concomitant]
     Active Substance: TEPRENONE
  3. AZULENE SODIUM SULFONATE [Concomitant]
     Active Substance: SODIUM GUALENATE
  4. TIAPROFENIC ACID [Concomitant]
     Active Substance: TIAPROFENIC ACID
  5. SENNOSIDE                          /00571901/ [Concomitant]
     Active Substance: SENNOSIDES A AND B
  6. ASPARTATE CALCIUM [Concomitant]
     Active Substance: CALCIUM ASPARTATE
  7. MAGNESIUM OXIDE. [Concomitant]
     Active Substance: MAGNESIUM OXIDE
  8. ALENDRONATE SODIUM. [Concomitant]
     Active Substance: ALENDRONATE SODIUM
  9. ALFACALCIDOL [Concomitant]
     Active Substance: ALFACALCIDOL

REACTIONS (1)
  - Atrial fibrillation [Recovered/Resolved]
